FAERS Safety Report 22166463 (Version 1)
Quarter: 2023Q2

REPORT INFORMATION
  Report Type: Spontaneous
  Country: SA (occurrence: None)
  Receive Date: 20230403
  Receipt Date: 20230403
  Transmission Date: 20230721
  Serious: Yes (Other)
  Sender: FDA-Public Use
  Company Number: 2023A072025

PATIENT
  Age: 49 Year
  Sex: Female

DRUGS (3)
  1. DURVALUMAB [Suspect]
     Active Substance: DURVALUMAB
     Indication: Breast cancer metastatic
     Dosage: DOSE UNKNOWN
     Route: 058
  2. DURVALUMAB [Suspect]
     Active Substance: DURVALUMAB
     Indication: Breast cancer metastatic
     Dosage: DOSE UNKNOWN
     Route: 058
  3. PACLITAXEL [Concomitant]
     Active Substance: PACLITAXEL
     Indication: Breast cancer metastatic

REACTIONS (1)
  - Eosinophilia [Unknown]
